FAERS Safety Report 5981930-6 (Version None)
Quarter: 2008Q4

REPORT INFORMATION
  Report Type: 
  Country: None (occurrence: None)
  Receive Date: 20081202
  Receipt Date: 20081114
  Transmission Date: 20090506
  Serious: No
  Sender: FDA-Public Use
  Company Number: SPI200800556

PATIENT
  Sex: Female

DRUGS (1)
  1. AMITIZA [Suspect]

REACTIONS (1)
  - DYSPNOEA [None]
